FAERS Safety Report 26063776 (Version 2)
Quarter: 2025Q4

REPORT INFORMATION
  Report Type: Spontaneous
  Country: CN (occurrence: CN)
  Receive Date: 20251119
  Receipt Date: 20251217
  Transmission Date: 20260119
  Serious: Yes (Other)
  Sender: ARGENX BVBA
  Company Number: CN-ARGENX-2025-ARGX-CN015996

PATIENT

DRUGS (1)
  1. VYVGART [Suspect]
     Active Substance: EFGARTIGIMOD ALFA-FCAB
     Indication: Myasthenia gravis
     Dosage: 800 MG, 1/WEEK
     Route: 042
     Dates: start: 20250417, end: 20250424

REACTIONS (2)
  - Neuropathy peripheral [Recovering/Resolving]
  - Drug ineffective [Recovering/Resolving]
